FAERS Safety Report 6210512-6 (Version None)
Quarter: 2009Q2

REPORT INFORMATION
  Report Type: 
  Country: None (occurrence: None)
  Receive Date: 20090601
  Receipt Date: 20090520
  Transmission Date: 20091009
  Serious: Yes (Other)
  Sender: FDA-Public Use
  Company Number: A0787202A

PATIENT
  Age: 21 Year
  Sex: Female

DRUGS (1)
  1. LAMOTRIGINE [Suspect]
     Indication: BIPOLAR DISORDER
     Dosage: 150MG PER DAY
     Route: 048
     Dates: start: 20090201

REACTIONS (2)
  - DRUG EXPOSURE DURING PREGNANCY [None]
  - UTERINE HAEMORRHAGE [None]
